FAERS Safety Report 9517363 (Version 3)
Quarter: 2013Q4

REPORT INFORMATION
  Report Type: Spontaneous
  Country: US (occurrence: US)
  Receive Date: 20130911
  Receipt Date: 20131112
  Transmission Date: 20140711
  Serious: Yes (Hospitalization, Other)
  Sender: FDA-Public Use
  Company Number: US-SANOFI-AVENTIS-2013SA089665

PATIENT
  Age: 81 Year
  Sex: Female

DRUGS (11)
  1. PLAVIX [Suspect]
     Route: 048
  2. ASPIRIN [Suspect]
     Route: 048
  3. ALEVE [Suspect]
     Route: 065
  4. SUTENT [Suspect]
     Indication: RENAL CELL CARCINOMA
     Dosage: TAKE 1.5 MG DAILY ORALLY
     Route: 048
  5. METOPROLOL [Suspect]
     Route: 065
  6. ENALAPRIL [Suspect]
     Route: 065
  7. COUMADIN [Suspect]
     Route: 065
  8. DIGOXIN [Concomitant]
     Route: 048
  9. ZETIA [Concomitant]
     Route: 048
  10. ATENOLOL [Concomitant]
  11. ALISKIREN [Concomitant]

REACTIONS (15)
  - Dyspnoea [Unknown]
  - Cardiac disorder [Unknown]
  - Urinary tract infection [Unknown]
  - Dehydration [Unknown]
  - Blood pressure decreased [Unknown]
  - Asthenia [Unknown]
  - Somnolence [Unknown]
  - Abdominal pain upper [Unknown]
  - Stress [Unknown]
  - Alopecia [Unknown]
  - Decreased appetite [Unknown]
  - International normalised ratio fluctuation [Unknown]
  - Oesophageal pain [Unknown]
  - Epistaxis [Unknown]
  - Off label use [Unknown]
